FAERS Safety Report 6809357-5 (Version None)
Quarter: 2010Q2

REPORT INFORMATION
  Report Type: 
  Country: None (occurrence: None)
  Receive Date: 20100630
  Receipt Date: 20100531
  Transmission Date: 20101027
  Serious: Yes (Other)
  Sender: FDA-Public Use
  Company Number: CA-BAYER-201024178NA

PATIENT
  Age: 53 Year
  Sex: Female

DRUGS (5)
  1. BETASERON [Suspect]
     Indication: SECONDARY PROGRESSIVE MULTIPLE SCLEROSIS
     Route: 058
     Dates: start: 20040601
  2. GABAPENTIN [Concomitant]
  3. HYPERTENSION MEDICATION [Concomitant]
  4. ANTIDEPRESSANTS [Concomitant]
  5. ANTIANXIETY [Concomitant]

REACTIONS (20)
  - ABASIA [None]
  - BACK PAIN [None]
  - BALANCE DISORDER [None]
  - BLOOD GLUCOSE INCREASED [None]
  - CHILLS [None]
  - HAEMORRHAGE [None]
  - HYPOCHONDRIASIS [None]
  - HYPOTENSION [None]
  - INCONTINENCE [None]
  - LIMB INJURY [None]
  - MASS [None]
  - MEMORY IMPAIRMENT [None]
  - MULTIPLE SCLEROSIS [None]
  - MUSCULAR WEAKNESS [None]
  - NAIL DISORDER [None]
  - PAIN [None]
  - PROTEIN URINE PRESENT [None]
  - SOMNOLENCE [None]
  - TYPE 1 DIABETES MELLITUS [None]
  - VISUAL IMPAIRMENT [None]
